FAERS Safety Report 4816407-4 (Version None)
Quarter: 2005Q4

REPORT INFORMATION
  Report Type: 
  Country: None (occurrence: None)
  Receive Date: 20051028
  Receipt Date: 20051019
  Transmission Date: 20060501
  Serious: Yes (Other)
  Sender: FDA-Public Use
  Company Number: 2005113196

PATIENT
  Age: 57 Year
  Sex: Female

DRUGS (5)
  1. LIPITOR [Suspect]
     Indication: BLOOD CHOLESTEROL INCREASED
     Dosage: 20 MG (20 MG, 1 IN 1 D), ORAL
     Route: 048
     Dates: start: 20040101, end: 20050701
  2. PANTOPRAZOLE SODIUM [Concomitant]
  3. CALCITONIN, SALMON (CALCITONIN, SALMON) [Concomitant]
  4. RAMIPRIL [Concomitant]
  5. SYMBICORT TURBOHALER (BUDESONIDE, FORMOTEROL FUMARATE) [Concomitant]

REACTIONS (3)
  - ARTHRALGIA [None]
  - DISEASE RECURRENCE [None]
  - GOITRE [None]
